FAERS Safety Report 8236638 (Version 5)
Quarter: 2012Q4

REPORT INFORMATION
  Report Type: 
  Country: US (occurrence: US)
  Receive Date: 20111108
  Receipt Date: 20120924
  Transmission Date: 20130627
  Serious: Yes (Hospitalization, Other)
  Sender: FDA-Public Use
  Company Number: US-009507513-1111USA00734

PATIENT

DRUGS (5)
  1. FOSAMAX [Suspect]
     Indication: OSTEOPOROSIS
     Dosage: 10 mg, UNK
     Route: 048
     Dates: start: 19971222, end: 20071226
  2. FOSAMAX [Suspect]
     Dosage: 70 mg qw
     Route: 048
     Dates: start: 19971222, end: 20071226
  3. FOSAMAX [Suspect]
     Indication: OSTEOPOROSIS
     Dosage: 70 mg, qw
     Route: 048
     Dates: start: 20080318, end: 200902
  4. BONIVA [Suspect]
     Dosage: UNK UNK, QM3
     Dates: start: 200812, end: 200911
  5. OS-CAL (CALCIUM CARBONATE) [Concomitant]
     Dosage: UNK
     Dates: start: 1993

REACTIONS (46)
  - Femur fracture [Unknown]
  - Knee arthroplasty [Unknown]
  - Hiatus hernia [Unknown]
  - Heart rate irregular [Unknown]
  - Haemoglobin decreased [Unknown]
  - Rib fracture [Unknown]
  - Low turnover osteopathy [Unknown]
  - Dental caries [Unknown]
  - Pulmonary mass [Unknown]
  - Hypokalaemia [Unknown]
  - Leukocytosis [Unknown]
  - Haemorrhagic anaemia [Unknown]
  - Head injury [Unknown]
  - Cardiac murmur [Unknown]
  - Hyperlipidaemia [Unknown]
  - Hypertension [Unknown]
  - Benign breast neoplasm [Unknown]
  - Ecchymosis [Unknown]
  - Polyarthritis [Unknown]
  - Colon adenoma [Unknown]
  - Anxiety [Unknown]
  - Depression [Unknown]
  - Lymphadenopathy mediastinal [Unknown]
  - Dyspnoea [Unknown]
  - Aortic arteriosclerosis [Unknown]
  - Cardiomegaly [Unknown]
  - Pericardial effusion [Unknown]
  - Fracture nonunion [Unknown]
  - Upper respiratory tract infection [Unknown]
  - Diverticulum [Unknown]
  - Gastrointestinal vascular malformation [Unknown]
  - Haemorrhoids [Unknown]
  - Rectal haemorrhage [Unknown]
  - Urinary incontinence [Unknown]
  - Palpitations [Unknown]
  - Cerebral disorder [Unknown]
  - Anaemia postoperative [Unknown]
  - Chronic obstructive pulmonary disease [Unknown]
  - Fibrocystic breast disease [Unknown]
  - Cataract [Unknown]
  - Blood pressure increased [Unknown]
  - Large intestine polyp [Unknown]
  - Osteoarthritis [Unknown]
  - Gastrooesophageal reflux disease [Unknown]
  - Back pain [Not Recovered/Not Resolved]
  - Dyspepsia [Unknown]
